FAERS Safety Report 18594283 (Version 3)
Quarter: 2022Q3

REPORT INFORMATION
  Report Type: Report from Study
  Country: DE (occurrence: DE)
  Receive Date: 20201209
  Receipt Date: 20220720
  Transmission Date: 20221027
  Serious: Yes (Hospitalization)
  Sender: FDA-Public Use
  Company Number: NVSC2020DE325670

PATIENT
  Age: 4 Year
  Sex: Female
  Weight: 20.8 kg

DRUGS (4)
  1. ILARIS [Suspect]
     Active Substance: CANAKINUMAB
     Indication: Pneumonia
     Dosage: 36 MG, QMO
     Route: 058
     Dates: start: 20200121
  2. ILARIS [Suspect]
     Active Substance: CANAKINUMAB
     Dosage: 90 MG (LAST TREATMENT WITH STUDY DRUG: 21 MAY 2022)
     Route: 058
     Dates: start: 20220521
  3. COLCHICINE [Concomitant]
     Active Substance: COLCHICINE
     Indication: Familial cold autoinflammatory syndrome
     Dosage: 1 MG, QD
     Route: 048
     Dates: start: 20180412
  4. COLCHICINE [Concomitant]
     Active Substance: COLCHICINE
     Dosage: 0.5 MG, BID (COLCHICINE 2 X DAILY 0.5 MG)
     Route: 048
     Dates: start: 20180412

REACTIONS (4)
  - Dehydration [Recovered/Resolved]
  - Gastroenteritis [Recovered/Resolved]
  - Infection [Recovered/Resolved]
  - Condition aggravated [Recovered/Resolved]

NARRATIVE: CASE EVENT DATE: 20201117
